FAERS Safety Report 23613512 (Version 1)
Quarter: 2024Q1

REPORT INFORMATION
  Report Type: Spontaneous
  Country: US (occurrence: US)
  Receive Date: 20240308
  Receipt Date: 20240308
  Transmission Date: 20240409
  Serious: Yes (Hospitalization)
  Sender: FDA-Public Use
  Company Number: US-BIOMARINAP-US-2024-156354

PATIENT

DRUGS (1)
  1. VOXZOGO [Suspect]
     Active Substance: VOSORITIDE
     Indication: Osteochondrodysplasia
     Dosage: 0.40 MILLIGRAM, QD
     Route: 058
     Dates: start: 20231221

REACTIONS (2)
  - Aspiration [Recovering/Resolving]
  - Oxygen saturation decreased [Recovering/Resolving]
